FAERS Safety Report 15789715 (Version 1)
Quarter: 2019Q1

REPORT INFORMATION
  Report Type: Spontaneous
  Country: PR (occurrence: PR)
  Receive Date: 20190103
  Receipt Date: 20190103
  Transmission Date: 20190417
  Serious: Yes (Life-Threatening, Hospitalization)
  Sender: FDA-Public Use
  Company Number: None

PATIENT
  Age: 86 Year
  Sex: Female
  Weight: 45 kg

DRUGS (1)
  1. ERTAPENEM. [Suspect]
     Active Substance: ERTAPENEM SODIUM
     Indication: POSTOPERATIVE WOUND INFECTION
     Route: 042
     Dates: start: 20181229, end: 20190102

REACTIONS (1)
  - Seizure [None]

NARRATIVE: CASE EVENT DATE: 20190103
